FAERS Safety Report 4753305-9 (Version None)
Quarter: 2005Q3

REPORT INFORMATION
  Report Type: 
  Country: None (occurrence: None)
  Receive Date: 20050823
  Receipt Date: 20050809
  Transmission Date: 20060218
  Serious: Yes (Other)
  Sender: FDA-Public Use
  Company Number: US_0502113231

PATIENT
  Age: 56 Year
  Sex: Female

DRUGS (2)
  1. FORTEO [Suspect]
     Indication: OSTEOARTHRITIS
     Dosage: 20 UG DAY
     Dates: start: 20040701, end: 20050713
  2. ROFECOXIB [Concomitant]

REACTIONS (9)
  - ANXIETY [None]
  - BACK PAIN [None]
  - DISCOMFORT [None]
  - DRUG EFFECT DECREASED [None]
  - FALL [None]
  - INTERVERTEBRAL DISC PROTRUSION [None]
  - PHARMACEUTICAL PRODUCT COMPLAINT [None]
  - POST PROCEDURAL COMPLICATION [None]
  - SURGICAL PROCEDURE REPEATED [None]
